FAERS Safety Report 5334394-X (Version None)
Quarter: 2007Q2

REPORT INFORMATION
  Report Type: 
  Country: None (occurrence: None)
  Receive Date: 20070525
  Receipt Date: 20070522
  Transmission Date: 20071010
  Serious: Yes (Hospitalization)
  Sender: FDA-Public Use
  Company Number: SE-BRISTOL-MYERS SQUIBB COMPANY-13790456

PATIENT
  Age: 61 Year
  Sex: Male

DRUGS (6)
  1. COAPROVEL FILM-COATED TABS 150/12.5 MG [Suspect]
     Indication: HYPERTENSION
     Route: 048
     Dates: end: 20070225
  2. METHOTREXATE [Suspect]
     Indication: ARTHRITIS
     Route: 048
     Dates: end: 20070225
  3. SANDIMMUNE [Concomitant]
  4. XALATAN [Concomitant]
     Route: 047
  5. METFORMIN HCL [Concomitant]
     Route: 048
  6. CANESTAN CREAM [Concomitant]

REACTIONS (3)
  - BLOOD CREATININE INCREASED [None]
  - HYPOTENSION [None]
  - PANCYTOPENIA [None]
